FAERS Safety Report 19828766 (Version 1)
Quarter: 2021Q3

REPORT INFORMATION
  Report Type: Spontaneous
  Country: JP (occurrence: JP)
  Receive Date: 20210915
  Receipt Date: 20210915
  Transmission Date: 20211014
  Serious: Yes (Other)
  Sender: FDA-Public Use
  Company Number: JP-AMGEN-JPNSP2021139670

PATIENT
  Age: 59 Year
  Sex: Male

DRUGS (4)
  1. BRODALUMAB [Concomitant]
     Active Substance: BRODALUMAB
  2. APREMILAST [Suspect]
     Active Substance: APREMILAST
     Indication: PSORIASIS
     Dosage: UNK
     Route: 065
  3. ETRETINATE [Concomitant]
     Active Substance: ETRETINATE
  4. CICLOSPORIN [Concomitant]
     Active Substance: CYCLOSPORINE

REACTIONS (6)
  - Therapy non-responder [Unknown]
  - Renal impairment [Unknown]
  - Oral lichen planus [Recovering/Resolving]
  - Psoriasis [Unknown]
  - Oral candidiasis [Recovering/Resolving]
  - Psoriatic arthropathy [Unknown]
